FAERS Safety Report 18404587 (Version 1)
Quarter: 2020Q4

REPORT INFORMATION
  Report Type: Spontaneous
  Country: US (occurrence: US)
  Receive Date: 20201020
  Receipt Date: 20201020
  Transmission Date: 20210114
  Serious: No
  Sender: FDA-Public Use
  Company Number: None

PATIENT
  Age: 39 Year
  Sex: Female

DRUGS (1)
  1. OTREXUP [Suspect]
     Active Substance: METHOTREXATE
     Indication: SYSTEMIC LUPUS ERYTHEMATOSUS
     Dosage: ?          OTHER FREQUENCY:WKLY SAME DAY;?
     Route: 058
     Dates: start: 201911

REACTIONS (6)
  - Head discomfort [None]
  - Bone pain [None]
  - Contusion [None]
  - Abdominal pain [None]
  - Chest pain [None]
  - Malaise [None]
